FAERS Safety Report 6013962-6 (Version None)
Quarter: 2008Q4

REPORT INFORMATION
  Report Type: 
  Country: None (occurrence: None)
  Receive Date: 20081219
  Receipt Date: 20081210
  Transmission Date: 20090506
  Serious: Yes (Other)
  Sender: FDA-Public Use
  Company Number: US-JNJFOC-20081203284

PATIENT
  Sex: Female
  Weight: 113.4 kg

DRUGS (18)
  1. TOPAMAX [Suspect]
     Route: 048
  2. TOPAMAX [Suspect]
     Route: 048
  3. TOPAMAX [Suspect]
     Indication: FIBROMYALGIA
     Route: 048
  4. AROMASIN [Suspect]
     Indication: BREAST CANCER
  5. LYRICA [Suspect]
  6. LYRICA [Suspect]
  7. LYRICA [Suspect]
     Indication: FIBROMYALGIA
  8. PAXIL [Suspect]
     Indication: PAIN
  9. DULOXETINE [Suspect]
  10. DULOXETINE [Suspect]
     Indication: FIBROMYALGIA
  11. SEROQUEL [Concomitant]
     Indication: INSOMNIA
  12. FUROSIMIDE [Concomitant]
     Indication: FLUID RETENTION
  13. ACETAMINOPHEN [Concomitant]
     Indication: DRUG USE FOR UNKNOWN INDICATION
  14. METOPROLOL TARTRATE [Concomitant]
  15. MELOXICAM [Concomitant]
  16. POTASSIUM CHLORIDE [Concomitant]
  17. SENNA [Concomitant]
     Indication: GASTROINTESTINAL DISORDER
  18. SODIUM DOCUSATE [Concomitant]
     Indication: GASTROINTESTINAL DISORDER

REACTIONS (6)
  - HAIR GROWTH ABNORMAL [None]
  - HYPOAESTHESIA ORAL [None]
  - INFECTION [None]
  - MYALGIA [None]
  - RECTOCELE [None]
  - TINNITUS [None]
